FAERS Safety Report 9227577 (Version 1)
Quarter: 2013Q2

REPORT INFORMATION
  Report Type: Spontaneous
  Country: US (occurrence: US)
  Receive Date: 20130412
  Receipt Date: 20130412
  Transmission Date: 20140414
  Serious: Yes (Other)
  Sender: FDA-Public Use
  Company Number: US-PFIZER INC-2013114295

PATIENT
  Age: 59 Year
  Sex: Female

DRUGS (9)
  1. LYRICA [Suspect]
     Indication: NEURALGIA
     Dosage: 75 MG, 3X/DAY
     Dates: start: 2012
  2. CELEBREX [Suspect]
     Dosage: 1 DF, 2X/DAY
  3. LANTUS [Concomitant]
     Dosage: UNK
  4. NOVOLIN [Concomitant]
     Dosage: UNK
  5. LEVOTHYROXINE [Concomitant]
     Dosage: UNK
  6. LISINOPRIL [Concomitant]
     Dosage: UNK
  7. OMEPRAZOLE [Concomitant]
     Dosage: UNK
  8. OXYCODONE [Concomitant]
     Dosage: 7.5/325
  9. CYCLOBENZAPRINE [Concomitant]
     Dosage: UNK

REACTIONS (2)
  - Blood glucose increased [Unknown]
  - Pain [Unknown]
